FAERS Safety Report 5221447-X (Version None)
Quarter: 2007Q1

REPORT INFORMATION
  Report Type: 
  Country: None (occurrence: None)
  Receive Date: 20070126
  Receipt Date: 20070117
  Transmission Date: 20070707
  Serious: Yes (Other)
  Sender: FDA-Public Use
  Company Number: GB-MERCK-0701USA03381

PATIENT
  Age: 69 Year
  Sex: Male
  Weight: 100 kg

DRUGS (4)
  1. PRINIVIL [Suspect]
     Route: 048
     Dates: start: 20061215, end: 20061217
  2. ATENOLOL [Concomitant]
     Route: 065
     Dates: end: 20061214
  3. CORACTEN [Concomitant]
     Route: 048
     Dates: start: 20060105
  4. SIMVASTATIN [Concomitant]
     Route: 048
     Dates: start: 20060105

REACTIONS (2)
  - MUSCULAR WEAKNESS [None]
  - PALPITATIONS [None]
